FAERS Safety Report 11549970 (Version 1)
Quarter: 2015Q3

REPORT INFORMATION
  Report Type: Report from Study
  Country: US (occurrence: US)
  Receive Date: 20150924
  Receipt Date: 20150924
  Transmission Date: 20151125
  Serious: Yes (Hospitalization)
  Sender: FDA-Public Use
  Company Number: US-KADMON PHARMACEUTICALS, LLC-KAD201509-003125

PATIENT
  Age: 34 Year
  Sex: Female
  Weight: 60.32 kg

DRUGS (14)
  1. CARVEDILOL. [Concomitant]
     Active Substance: CARVEDILOL
  2. VIEKIRA PAK [Suspect]
     Active Substance: DASABUVIR\OMBITASVIR\PARITAPREVIR\RITONAVIR
     Indication: HEPATITIS C
     Dosage: 12.5MG/5MG/50MG 1 EVERY AM, 2 EVERY PM
     Route: 048
     Dates: start: 20150506
  3. PREVACID [Concomitant]
     Active Substance: LANSOPRAZOLE
     Route: 048
  4. SENSIPAR [Concomitant]
     Active Substance: CINACALCET HYDROCHLORIDE
  5. FAMOTIDINA [Concomitant]
  6. REGLAN [Concomitant]
     Active Substance: METOCLOPRAMIDE HYDROCHLORIDE
  7. LACTULOSE. [Concomitant]
     Active Substance: LACTULOSE
  8. ROCEPHIN [Concomitant]
     Active Substance: CEFTRIAXONE SODIUM
  9. TENEX [Concomitant]
     Active Substance: GUANFACINE HYDROCHLORIDE
  10. RIBAVIRIN 600 MG [Suspect]
     Active Substance: RIBAVIRIN
     Indication: HEPATITIS C
     Route: 048
     Dates: start: 20150506
  11. VITAMIN D [Concomitant]
     Active Substance: CHOLECALCIFEROL
  12. DILAUDID [Concomitant]
     Active Substance: HYDROMORPHONE HYDROCHLORIDE
  13. LISINOPRIL. [Concomitant]
     Active Substance: LISINOPRIL
  14. NORVASC [Concomitant]
     Active Substance: AMLODIPINE BESYLATE

REACTIONS (13)
  - Gastrointestinal erosion [Unknown]
  - Nodule [Unknown]
  - Vomiting [Unknown]
  - Abdominal discomfort [Unknown]
  - Gastric ulcer [Unknown]
  - Haemorrhagic anaemia [Unknown]
  - Upper gastrointestinal haemorrhage [Unknown]
  - Gastrointestinal inflammation [Unknown]
  - Gastrointestinal telangiectasia [Unknown]
  - Faeces discoloured [Unknown]
  - Cardiomegaly [Unknown]
  - Pericardial effusion [Unknown]
  - Nausea [Unknown]

NARRATIVE: CASE EVENT DATE: 20150604
